FAERS Safety Report 15097923 (Version 1)
Quarter: 2018Q2

REPORT INFORMATION
  Report Type: Spontaneous
  Country: US (occurrence: US)
  Receive Date: 20180611
  Receipt Date: 20180611
  Transmission Date: 20180711
  Serious: Yes (Hospitalization)
  Sender: FDA-Public Use
  Company Number: None

PATIENT
  Age: 70 Year
  Sex: Male
  Weight: 73.03 kg

DRUGS (1)
  1. NIVOLUMAB [Suspect]
     Active Substance: NIVOLUMAB
     Indication: LARGE CELL LUNG CANCER STAGE IV
     Route: 042
     Dates: start: 20161031, end: 20170131

REACTIONS (3)
  - Autoimmune colitis [None]
  - Hypokalaemia [None]
  - Diarrhoea [None]

NARRATIVE: CASE EVENT DATE: 20170606
